FAERS Safety Report 19314853 (Version 2)
Quarter: 2021Q2

REPORT INFORMATION
  Report Type: Spontaneous
  Country: US (occurrence: US)
  Receive Date: 20210527
  Receipt Date: 20210609
  Transmission Date: 20210717
  Serious: No
  Sender: FDA-Public Use
  Company Number: US-SA-2021SA172157

PATIENT
  Age: 33 Year
  Sex: Female

DRUGS (1)
  1. DUPIXENT [Suspect]
     Active Substance: DUPILUMAB
     Indication: DERMATITIS ATOPIC
     Dosage: 300MG
     Route: 058
     Dates: end: 20210425

REACTIONS (8)
  - Skin haemorrhage [Unknown]
  - Pruritus [Unknown]
  - Skin weeping [Unknown]
  - Blister [Unknown]
  - Dry skin [Unknown]
  - Eczema [Unknown]
  - Product dose omission issue [Unknown]
  - Skin exfoliation [Unknown]

NARRATIVE: CASE EVENT DATE: 20210509
